FAERS Safety Report 8051802-4 (Version None)
Quarter: 2012Q1

REPORT INFORMATION
  Report Type: 
  Country: None (occurrence: None)
  Receive Date: 20120118
  Receipt Date: 20120109
  Transmission Date: 20120608
  Serious: Yes (Life-Threatening, Hospitalization)
  Sender: FDA-Public Use
  Company Number: FR-BRISTOL-MYERS SQUIBB COMPANY-16326753

PATIENT
  Age: 61 Year
  Sex: Male

DRUGS (5)
  1. VALSARTAN [Suspect]
     Dosage: FORMULATION-TABLET
     Route: 048
  2. GLUCOPHAGE [Suspect]
     Indication: TYPE 2 DIABETES MELLITUS
     Dosage: FORMULATION-TABLET
     Route: 048
     Dates: end: 20110924
  3. ALDACTONE [Suspect]
     Dosage: THERAPY STOPPED
     Route: 048
  4. PROPRANOLOL [Suspect]
     Route: 048
  5. PREDNISOLONE [Suspect]

REACTIONS (3)
  - RENAL FAILURE ACUTE [None]
  - LACTIC ACIDOSIS [None]
  - SEPTIC SHOCK [None]
